FAERS Safety Report 25584810 (Version 1)
Quarter: 2025Q3

REPORT INFORMATION
  Report Type: Spontaneous
  Country: EU (occurrence: EU)
  Receive Date: 20250721
  Receipt Date: 20250721
  Transmission Date: 20251021
  Serious: Yes (Life-Threatening, Other)
  Sender: CHEPLAPHARM
  Company Number: None

PATIENT
  Age: 31 Year
  Sex: Male

DRUGS (4)
  1. QUETIAPINE [Suspect]
     Active Substance: QUETIAPINE
     Route: 048
     Dates: start: 20250628
  2. QUETIAPINE [Suspect]
     Active Substance: QUETIAPINE
  3. CITALOPRAM [Suspect]
     Active Substance: CITALOPRAM
  4. OXAZEPAM [Suspect]
     Active Substance: OXAZEPAM

REACTIONS (2)
  - Neuroleptic malignant syndrome [Recovered/Resolved]
  - Acute kidney injury [Unknown]

NARRATIVE: CASE EVENT DATE: 20250630
